FAERS Safety Report 4300832-4 (Version None)
Quarter: 2004Q1

REPORT INFORMATION
  Report Type: 
  Country: None (occurrence: None)
  Receive Date: 20040220
  Receipt Date: 20040213
  Transmission Date: 20041129
  Serious: Yes (Hospitalization, Other)
  Sender: FDA-Public Use
  Company Number: WAES 0402AUS00083

PATIENT
  Age: 20 Year
  Sex: Male

DRUGS (5)
  1. ALBUTEROL [Concomitant]
     Indication: ASTHMA
  2. ENALAPRIL MALEATE [Concomitant]
     Indication: ESSENTIAL HYPERTENSION
     Route: 048
     Dates: start: 19901227
  3. FUROSEMIDE [Concomitant]
     Indication: OEDEMA
     Dates: start: 19910117
  4. METHYCLOTHIAZIDE [Concomitant]
     Indication: OEDEMA
     Route: 048
     Dates: start: 19910207
  5. ZOCOR [Suspect]
     Route: 048
     Dates: start: 19910723, end: 19911105

REACTIONS (3)
  - BLOOD CREATINE PHOSPHOKINASE INCREASED [None]
  - PHARYNGITIS [None]
  - PYREXIA [None]
